FAERS Safety Report 6369968-0 (Version None)
Quarter: 2009Q3

REPORT INFORMATION
  Report Type: 
  Country: None (occurrence: None)
  Receive Date: 20090923
  Receipt Date: 20070827
  Transmission Date: 20100115
  Serious: No
  Sender: FDA-Public Use
  Company Number: US-ASTRAZENECA-2006UW07982

PATIENT
  Age: 16026 Day
  Sex: Female
  Weight: 82.6 kg

DRUGS (11)
  1. SEROQUEL [Suspect]
     Indication: BIPOLAR DISORDER
     Dosage: 50-450 MG
     Route: 048
     Dates: start: 19970101
  2. SEROQUEL [Suspect]
     Indication: DEPRESSION
     Dosage: 50-450 MG
     Route: 048
     Dates: start: 19970101
  3. SEROQUEL [Suspect]
     Dosage: 25 MG HS, 50 MG HS,100 MG HS, 200 MG HS, 300 MG HS, 400 MG HS
     Route: 048
     Dates: start: 19990115
  4. SEROQUEL [Suspect]
     Dosage: 25 MG HS, 50 MG HS,100 MG HS, 200 MG HS, 300 MG HS, 400 MG HS
     Route: 048
     Dates: start: 19990115
  5. PROZAC [Concomitant]
     Dosage: 20 - 40 MG
     Route: 048
     Dates: start: 19940216, end: 20051205
  6. DALMANE [Concomitant]
     Route: 048
     Dates: start: 19990115
  7. LASIX [Concomitant]
     Dosage: 20 - 40 MG
     Route: 065
     Dates: start: 19990708
  8. LOPRESSOR [Concomitant]
     Dosage: 50 - 150 MG
     Route: 048
     Dates: start: 20010809, end: 20040325
  9. SYNTHROID [Concomitant]
     Dosage: 0.025 MG - 25 MCG
     Route: 065
     Dates: start: 20030501
  10. XANAX [Concomitant]
     Dosage: 0.25 MG BID,TID, 1 MG HS
     Route: 048
     Dates: start: 19910404
  11. NEXIUM [Concomitant]
     Route: 048
     Dates: start: 20020524

REACTIONS (5)
  - BLOOD CHOLESTEROL INCREASED [None]
  - DIABETES MELLITUS [None]
  - OBESITY [None]
  - TYPE 1 DIABETES MELLITUS [None]
  - TYPE 2 DIABETES MELLITUS [None]
